FAERS Safety Report 15705810 (Version 2)
Quarter: 2019Q1

REPORT INFORMATION
  Report Type: Report from Study
  Country: US (occurrence: US)
  Receive Date: 20181210
  Receipt Date: 20190109
  Transmission Date: 20190417
  Serious: Yes (Death, Hospitalization)
  Sender: FDA-Public Use
  Company Number: US-BAYER-2018-198984

PATIENT
  Age: 54 Year
  Sex: Male

DRUGS (2)
  1. NEXAVAR [Suspect]
     Active Substance: SORAFENIB
     Indication: HEPATOCELLULAR CARCINOMA
     Dosage: 400 MG, BID
     Route: 048
     Dates: start: 20181115, end: 20181127
  2. NEXAVAR [Suspect]
     Active Substance: SORAFENIB
     Indication: HEPATOCELLULAR CARCINOMA
     Dosage: 200 MG, BID
     Route: 048
     Dates: start: 201810, end: 2018

REACTIONS (11)
  - Pain in extremity [None]
  - Confusional state [None]
  - Endoscopy [None]
  - Hallucination [None]
  - Off label use [None]
  - Product dose omission [None]
  - Death [Fatal]
  - Blister [None]
  - Asthenia [None]
  - Fatigue [None]
  - Rash [None]

NARRATIVE: CASE EVENT DATE: 2018
